FAERS Safety Report 5903046-7 (Version None)
Quarter: 2008Q3

REPORT INFORMATION
  Report Type: 
  Country: None (occurrence: None)
  Receive Date: 20080930
  Receipt Date: 20080919
  Transmission Date: 20090109
  Serious: Yes (Other)
  Sender: FDA-Public Use
  Company Number: BR-ROCHE-571912

PATIENT
  Sex: Female
  Weight: 65 kg

DRUGS (8)
  1. BONIVA [Suspect]
     Indication: OSTEOPOROSIS
     Dosage: OTHER INDICATION: ARTHROSIS
     Route: 048
     Dates: start: 20070101, end: 20080701
  2. BONIVA [Suspect]
     Route: 048
     Dates: start: 20080901
  3. ANAESTHETIC DRUGS NOS [Suspect]
     Indication: SURGERY
     Route: 065
     Dates: start: 20080822, end: 20080822
  4. CITALOPRAM [Concomitant]
     Indication: DEPRESSION
     Route: 048
     Dates: start: 20060101
  5. RIVOTRIL [Concomitant]
     Indication: DEPRESSION
     Dates: start: 20060101
  6. GINKGO BILOBA [Concomitant]
  7. ARTICHOKE LEAF [Concomitant]
     Indication: WEIGHT CONTROL
  8. OMEPRAZOLE [Concomitant]

REACTIONS (7)
  - ANAPHYLACTIC REACTION [None]
  - BACTERIAL INFECTION [None]
  - DEPRESSION [None]
  - FALL [None]
  - PANCREATIC CYST [None]
  - UPPER LIMB FRACTURE [None]
  - WEIGHT DECREASED [None]
